FAERS Safety Report 6807525-X (Version None)
Quarter: 2010Q2

REPORT INFORMATION
  Report Type: 
  Country: None (occurrence: None)
  Receive Date: 20100629
  Receipt Date: 20081016
  Transmission Date: 20101027
  Serious: No
  Sender: FDA-Public Use
  Company Number: US-PFIZER INC-2008087503

PATIENT
  Age: 19 Year

DRUGS (2)
  1. ZYVOX [Suspect]
     Indication: STAPHYLOCOCCAL INFECTION
     Dates: start: 20081001
  2. SEROQUEL [Interacting]

REACTIONS (2)
  - DRUG INTERACTION [None]
  - LIVER FUNCTION TEST ABNORMAL [None]
